FAERS Safety Report 21231557 (Version 1)
Quarter: 2022Q3

REPORT INFORMATION
  Report Type: Spontaneous
  Country: US (occurrence: US)
  Receive Date: 20220819
  Receipt Date: 20220819
  Transmission Date: 20221027
  Serious: No
  Sender: FDA-Public Use
  Company Number: US-BIOGEN-2018BI00635253

PATIENT
  Sex: Male

DRUGS (8)
  1. TECFIDERA [Suspect]
     Active Substance: DIMETHYL FUMARATE
     Indication: Multiple sclerosis
     Dosage: MAINTENANCE DOSE
     Route: 050
     Dates: start: 20171128, end: 20200821
  2. TECFIDERA [Suspect]
     Active Substance: DIMETHYL FUMARATE
     Dosage: STARTER DOSE
     Route: 050
  3. TECFIDERA [Suspect]
     Active Substance: DIMETHYL FUMARATE
     Dosage: MAINTENANCE DOSE
     Route: 050
  4. TECFIDERA [Suspect]
     Active Substance: DIMETHYL FUMARATE
     Route: 050
     Dates: start: 20171128, end: 20200722
  5. LYRICA [Concomitant]
     Active Substance: PREGABALIN
     Route: 050
  6. CARVEDILOL [Concomitant]
     Active Substance: CARVEDILOL
     Route: 050
  7. AMLODIPINE BESYLATE [Concomitant]
     Active Substance: AMLODIPINE BESYLATE
     Route: 050
  8. LEVOTHYROXINE SODIUM [Concomitant]
     Active Substance: LEVOTHYROXINE SODIUM
     Route: 050

REACTIONS (7)
  - Multiple sclerosis [Not Recovered/Not Resolved]
  - Fatigue [Unknown]
  - Discomfort [Unknown]
  - Abdominal discomfort [Unknown]
  - Gastrointestinal disorder [Recovered/Resolved]
  - Gastric disorder [Recovered/Resolved]
  - Flushing [Unknown]
